FAERS Safety Report 20533398 (Version 1)
Quarter: 2022Q1

REPORT INFORMATION
  Report Type: Other
  Country: NO (occurrence: None)
  Receive Date: 20220301
  Receipt Date: 20220301
  Transmission Date: 20220423
  Serious: Yes (Other)
  Sender: FDA-Public Use
  Company Number: NO-Merck Healthcare KGaA-9279644

PATIENT
  Age: 18 Year
  Sex: Female

DRUGS (2)
  1. CLADRIBINE [Suspect]
     Active Substance: CLADRIBINE
     Indication: Relapsing-remitting multiple sclerosis
     Dosage: YEAR 1 MONTH ONE: WEEKLY CURES ACCORDING TO WEIGHT
     Route: 048
     Dates: start: 20190408
  2. CLADRIBINE [Suspect]
     Active Substance: CLADRIBINE
     Dosage: WEEKLY CURES ACCORDING TO WEIGHT
     Route: 048
     Dates: end: 20190520

REACTIONS (1)
  - Multiple sclerosis relapse [Recovered/Resolved]

NARRATIVE: CASE EVENT DATE: 20190701
